FAERS Safety Report 16128394 (Version 1)
Quarter: 2019Q1

REPORT INFORMATION
  Report Type: Report from Study
  Country: None (occurrence: US)
  Receive Date: 20190328
  Receipt Date: 20190328
  Transmission Date: 20190418
  Serious: Yes (Other)
  Sender: FDA-Public Use
  Company Number: US-ABBVIE-19K-163-2716860-00

PATIENT
  Age: 61 Year
  Sex: Female

DRUGS (1)
  1. HUMIRA [Suspect]
     Active Substance: ADALIMUMAB
     Indication: PSORIATIC ARTHROPATHY
     Dosage: CITRATE FREE
     Route: 058
     Dates: start: 20190122, end: 2019

REACTIONS (4)
  - Hernia [Recovering/Resolving]
  - Injection site papule [Recovered/Resolved]
  - Procedural pain [Unknown]
  - Injection site urticaria [Recovered/Resolved]

NARRATIVE: CASE EVENT DATE: 201903
